FAERS Safety Report 6946768-1 (Version None)
Quarter: 2010Q3

REPORT INFORMATION
  Report Type: 
  Country: None (occurrence: None)
  Receive Date: 20100825
  Receipt Date: 20100810
  Transmission Date: 20110219
  Serious: Yes (Life-Threatening, Hospitalization)
  Sender: FDA-Public Use
  Company Number: AMI0023794

PATIENT
  Age: 88 Year
  Sex: Female

DRUGS (11)
  1. TIMOPTIC [Suspect]
     Dosage: OPHT
     Route: 047
  2. DIGOXIN [Suspect]
     Dosage: 0.125 MG/DAILY/PO
     Route: 048
     Dates: start: 20091001
  3. CORDARONE [Suspect]
     Dosage: 200 MG, DAILY, PO
     Route: 048
     Dates: start: 20091001
  4. INIPOMP [Concomitant]
  5. KARDEGIC [Concomitant]
  6. LASIX [Concomitant]
  7. SPECIAFOLDINE [Concomitant]
  8. ACETAMINOPHEN [Concomitant]
  9. STILLNOX [Concomitant]
  10. VASTAREL [Concomitant]
  11. BISOPROLOL FUMARATE [Concomitant]

REACTIONS (11)
  - ACCIDENTAL OVERDOSE [None]
  - BRADYCARDIA [None]
  - CARDIAC FAILURE [None]
  - CONTUSION [None]
  - DEHYDRATION [None]
  - EJECTION FRACTION DECREASED [None]
  - FALL [None]
  - HYPERKALAEMIA [None]
  - HYPERTENSIVE HEART DISEASE [None]
  - MALAISE [None]
  - RENAL FAILURE ACUTE [None]
